FAERS Safety Report 8115098-7 (Version None)
Quarter: 2012Q1

REPORT INFORMATION
  Report Type: 
  Country: None (occurrence: None)
  Receive Date: 20120131
  Receipt Date: 20120125
  Transmission Date: 20120608
  Serious: Yes (Other)
  Sender: FDA-Public Use
  Company Number: A0963088A

PATIENT
  Age: 54 Year
  Sex: Male

DRUGS (1)
  1. UREA PEROXIDE [Suspect]
     Indication: PRODUCT ORIGIN UNKNOWN
     Dosage: UNK / UNK / UNKNOWN

REACTIONS (3)
  - DRUG INEFFECTIVE [None]
  - EAR DISCOMFORT [None]
  - DEAFNESS UNILATERAL [None]
